FAERS Safety Report 14586880 (Version 1)
Quarter: 2018Q1

REPORT INFORMATION
  Report Type: Spontaneous
  Country: US (occurrence: US)
  Receive Date: 20180228
  Receipt Date: 20180228
  Transmission Date: 20180509
  Serious: Yes (Other)
  Sender: FDA-Public Use
  Company Number: None

PATIENT
  Age: 34 Year
  Sex: Male

DRUGS (1)
  1. CHANTIX [Suspect]
     Active Substance: VARENICLINE TARTRATE
     Indication: SMOKING CESSATION THERAPY
     Route: 048
     Dates: start: 20171001, end: 20171024

REACTIONS (6)
  - Rash [None]
  - Drug hypersensitivity [None]
  - Scratch [None]
  - Eczema nummular [None]
  - Skin abrasion [None]
  - Therapy change [None]

NARRATIVE: CASE EVENT DATE: 20171024
